FAERS Safety Report 8147443-0 (Version None)
Quarter: 2012Q1

REPORT INFORMATION
  Report Type: 
  Country: None (occurrence: None)
  Receive Date: 20120218
  Receipt Date: 20110208
  Transmission Date: 20120608
  Serious: No
  Sender: FDA-Public Use
  Company Number: US-ALLERGAN-1101948US

PATIENT
  Age: 49 Year
  Sex: Female

DRUGS (6)
  1. BOTOX COSMETIC [Suspect]
     Indication: SKIN WRINKLING
     Dosage: 50 UNITS, SINGLE
     Route: 030
     Dates: start: 20100618, end: 20100618
  2. BOTOX COSMETIC [Suspect]
     Dosage: 15 UNITS, SINGLE
     Route: 030
     Dates: start: 20100625, end: 20100625
  3. BLOOD PRESSURE MEDICATION [Concomitant]
     Indication: BLOOD PRESSURE
  4. MULTI-VITAMINS [Concomitant]
     Indication: PRODUCT USED FOR UNKNOWN INDICATION
  5. CHOLESTEROL MEDICATION [Concomitant]
     Indication: BLOOD CHOLESTEROL
  6. METFORMIN HCL [Concomitant]
     Indication: PRODUCT USED FOR UNKNOWN INDICATION
     Dosage: UNK

REACTIONS (1)
  - SKIN DISORDER [None]
